FAERS Safety Report 17672816 (Version 1)
Quarter: 2020Q2

REPORT INFORMATION
  Report Type: Spontaneous
  Country: US (occurrence: US)
  Receive Date: 20200415
  Receipt Date: 20200415
  Transmission Date: 20200713
  Serious: No
  Sender: FDA-Public Use
  Company Number: US-ALKERMES INC.-ALK-2019-004672

PATIENT
  Age: 37 Year
  Sex: Male
  Weight: 81.63 kg

DRUGS (8)
  1. VIVITROL [Suspect]
     Active Substance: NALTREXONE
     Dosage: 380 MG, QMO
     Route: 030
  2. ALPRAZOLAM. [Concomitant]
     Active Substance: ALPRAZOLAM
     Indication: PRODUCT USED FOR UNKNOWN INDICATION
     Dosage: UNK
  3. CLONIDINE. [Concomitant]
     Active Substance: CLONIDINE
     Indication: DRUG WITHDRAWAL SYNDROME
     Dosage: UNK
     Dates: start: 20190901
  4. VIVITROL [Suspect]
     Active Substance: NALTREXONE
     Dosage: 380 MG, QMO
     Route: 030
  5. VIVITROL [Suspect]
     Active Substance: NALTREXONE
     Indication: DRUG USE DISORDER
     Dosage: 380 MG, QMO
     Route: 030
     Dates: start: 20190830
  6. GABAPENTIN. [Concomitant]
     Active Substance: GABAPENTIN
     Indication: DRUG WITHDRAWAL SYNDROME
     Dosage: UNK
     Dates: start: 20190901
  7. CLONIDINE. [Concomitant]
     Active Substance: CLONIDINE
     Dosage: UNK
  8. GABAPENTIN. [Concomitant]
     Active Substance: GABAPENTIN
     Dosage: UNK

REACTIONS (12)
  - Withdrawal syndrome [Recovering/Resolving]
  - Feeling abnormal [Recovering/Resolving]
  - Drug dependence [Unknown]
  - Injection site mass [Not Recovered/Not Resolved]
  - Vomiting [Recovering/Resolving]
  - Insurance issue [Unknown]
  - Diarrhoea [Recovering/Resolving]
  - Injection site reaction [Not Recovered/Not Resolved]
  - Feeling of body temperature change [Recovering/Resolving]
  - Injection site pain [Unknown]
  - Injection site erythema [Not Recovered/Not Resolved]
  - Emotional distress [Unknown]

NARRATIVE: CASE EVENT DATE: 20190901
